FAERS Safety Report 12677742 (Version 3)
Quarter: 2016Q4

REPORT INFORMATION
  Report Type: Spontaneous
  Country: JP (occurrence: JP)
  Receive Date: 20160823
  Receipt Date: 20161024
  Transmission Date: 20170207
  Serious: Yes (Congenital Anomaly, Other)
  Sender: FDA-Public Use
  Company Number: JP-PFIZER INC-2016391217

PATIENT
  Sex: Male

DRUGS (1)
  1. AMPICILLIN SODIUM/SULBACTAM SODIUM [Suspect]
     Active Substance: AMPICILLIN SODIUM\SULBACTAM SODIUM
     Dosage: UNK
     Route: 064

REACTIONS (10)
  - Premature baby [Unknown]
  - Hydrocephalus [Unknown]
  - Haemorrhage [Unknown]
  - Respiratory disorder neonatal [Unknown]
  - Meningitis [None]
  - Haemorrhage intracranial [None]
  - Seizure [Unknown]
  - Maternal exposure during pregnancy [Unknown]
  - Tachypnoea [Unknown]
  - Brain abscess [Unknown]
